FAERS Safety Report 16408274 (Version 3)
Quarter: 2019Q4

REPORT INFORMATION
  Report Type: Spontaneous
  Country: KR (occurrence: KR)
  Receive Date: 20190610
  Receipt Date: 20191213
  Transmission Date: 20200122
  Serious: Yes (Death, Other)
  Sender: FDA-Public Use
  Company Number: KR-ROCHE-2331859

PATIENT
  Age: 43 Year
  Sex: Female
  Weight: 71 kg

DRUGS (3)
  1. NORMAL SALINE [Concomitant]
     Active Substance: SODIUM CHLORIDE
     Route: 065
  2. ACTILYSE [Suspect]
     Active Substance: ALTEPLASE
     Indication: PULMONARY EMBOLISM
     Route: 042
     Dates: start: 201411
  3. ACTILYSE [Suspect]
     Active Substance: ALTEPLASE
     Route: 042
     Dates: start: 20141111

REACTIONS (8)
  - Obstetrical pulmonary embolism [Fatal]
  - Seizure [Unknown]
  - Catheter site haematoma [Unknown]
  - Catheter site haemorrhage [Unknown]
  - Intra-abdominal haemorrhage [Unknown]
  - Vaginal haemorrhage [Unknown]
  - Shock [Unknown]
  - Epistaxis [Unknown]

NARRATIVE: CASE EVENT DATE: 201411
